FAERS Safety Report 23523598 (Version 1)
Quarter: 2024Q1

REPORT INFORMATION
  Report Type: Spontaneous
  Country: FR (occurrence: FR)
  Receive Date: 20240214
  Receipt Date: 20240214
  Transmission Date: 20240410
  Serious: Yes (Hospitalization)
  Sender: FDA-Public Use
  Company Number: None

PATIENT
  Age: 101 Year
  Sex: Male

DRUGS (2)
  1. PAXLOVID [Interacting]
     Active Substance: NIRMATRELVIR\RITONAVIR
     Indication: COVID-19 treatment
     Dosage: [PF-07321332 300 MG]/[RITONAVIR 100 MG]; 2X/DAY
     Route: 048
     Dates: start: 20240123
  2. LATANOPROST\TIMOLOL MALEATE [Interacting]
     Active Substance: LATANOPROST\TIMOLOL MALEATE
     Indication: Glaucoma
     Dosage: FREQ:24 H;1 DROP AT 6 P.M. WITH NO TIME LIMIT
     Route: 047
     Dates: start: 20240123, end: 20240123

REACTIONS (3)
  - Hypotension [Recovering/Resolving]
  - Sinus bradycardia [Recovering/Resolving]
  - Drug interaction [Unknown]

NARRATIVE: CASE EVENT DATE: 20240124
